FAERS Safety Report 15953910 (Version 1)
Quarter: 2019Q1

REPORT INFORMATION
  Report Type: Spontaneous
  Country: DE (occurrence: DE)
  Receive Date: 20190213
  Receipt Date: 20190213
  Transmission Date: 20190417
  Serious: Yes (Congenital Anomaly, Other)
  Sender: FDA-Public Use
  Company Number: DE-AUROBINDO-AUR-APL-2019-007212

PATIENT

DRUGS (5)
  1. L-THYROXIN [Concomitant]
     Active Substance: LEVOTHYROXINE SODIUM
     Indication: HYPOTHYROIDISM
     Dosage: 75 MICROGRAM, DAILY
     Route: 064
  2. PROGESTERONE. [Concomitant]
     Active Substance: PROGESTERONE
     Indication: PREMATURE LABOUR
     Dosage: 200 MILLIGRAM, DAILY
     Route: 064
  3. TAVOR (LORAZEPAM) [Suspect]
     Active Substance: LORAZEPAM
     Indication: SLEEP DISORDER
     Dosage: 1 MILLIGRAM, AS NECESSARY (IF REQUIRED)
     Route: 064
     Dates: start: 20180219, end: 20180403
  4. PAROXETINE. [Suspect]
     Active Substance: PAROXETINE
     Indication: OBSESSIVE THOUGHTS
     Dosage: 40 [MG/D ]/ 5-10MG/D UNTIL WEEK 7, WEEK 7-29 NO EXPOSURE, FROM WEEK 29 20-40 MG/D
     Route: 064
  5. SERTRALINE [Concomitant]
     Active Substance: SERTRALINE HYDROCHLORIDE
     Indication: ANXIETY DISORDER
     Dosage: 50 [MG/D ]/ INITIAL 25MG/D, THE INCREASED TO 50MG/D
     Route: 064
     Dates: start: 20180226, end: 20180311

REACTIONS (6)
  - Foetal exposure during pregnancy [Recovered/Resolved]
  - Congenital inguinal hernia [Recovered/Resolved]
  - Premature baby [Recovered/Resolved]
  - Respiratory disorder neonatal [Recovered/Resolved]
  - Congenital umbilical hernia [Recovered/Resolved]
  - Maternal drugs affecting foetus [None]

NARRATIVE: CASE EVENT DATE: 20180411
